FAERS Safety Report 4378744-X (Version None)
Quarter: 2004Q2

REPORT INFORMATION
  Report Type: 
  Country: None (occurrence: None)
  Receive Date: 20040609
  Receipt Date: 20040520
  Transmission Date: 20050107
  Serious: Yes (Hospitalization, Other)
  Sender: FDA-Public Use
  Company Number: US96055593A

PATIENT
  Age: 30 Year
  Sex: Male
  Weight: 82 kg

DRUGS (7)
  1. HUMULIN L [Suspect]
     Dosage: 45 U DAY
  2. HUMALOG [Suspect]
  3. HUMULIN N [Suspect]
     Indication: DIABETES MELLITUS
     Dosage: 40 U DAY
  4. HUMULIN R [Suspect]
     Indication: DIABETES MELLITUS
  5. SELDANE [Concomitant]
  6. VASOTEC [Concomitant]
  7. INSULIN GLARGINE [Concomitant]

REACTIONS (9)
  - BLOOD GLUCOSE DECREASED [None]
  - INJECTION SITE ERYTHEMA [None]
  - INJECTION SITE MASS [None]
  - INJECTION SITE REACTION [None]
  - INJECTION SITE URTICARIA [None]
  - LIPOHYPERTROPHY [None]
  - MIDDLE INSOMNIA [None]
  - PSYCHOMOTOR HYPERACTIVITY [None]
  - RETINOPATHY [None]
